FAERS Safety Report 25425226 (Version 1)
Quarter: 2025Q2

REPORT INFORMATION
  Report Type: Spontaneous
  Country: FR (occurrence: FR)
  Receive Date: 20250611
  Receipt Date: 20250611
  Transmission Date: 20250717
  Serious: Yes (Other)
  Sender: PFIZER
  Company Number: None

PATIENT
  Age: 44 Year
  Sex: Female
  Weight: 41 kg

DRUGS (4)
  1. CLINDAMYCIN [Suspect]
     Active Substance: CLINDAMYCIN
     Indication: Osteitis
     Dosage: 1800 MG, DAILY
     Route: 048
     Dates: start: 20250523
  2. LANSOPRAZOLE [Suspect]
     Active Substance: LANSOPRAZOLE
     Indication: Systemic scleroderma
     Route: 048
     Dates: start: 20250523
  3. ILOPROST TROMETHAMINE [Suspect]
     Active Substance: ILOPROST TROMETHAMINE
     Indication: Systemic scleroderma
     Route: 042
     Dates: start: 20250522, end: 20250526
  4. BOSENTAN [Concomitant]
     Active Substance: BOSENTAN

REACTIONS (1)
  - Hepatic cytolysis [Recovering/Resolving]

NARRATIVE: CASE EVENT DATE: 20250526
